FAERS Safety Report 8196450-0 (Version None)
Quarter: 2012Q1

REPORT INFORMATION
  Report Type: 
  Country: None (occurrence: None)
  Receive Date: 20120309
  Receipt Date: 20120301
  Transmission Date: 20120608
  Serious: Yes (Hospitalization, Other)
  Sender: FDA-Public Use
  Company Number: US-US-EMD SERONO, INC.-7063076

PATIENT
  Sex: Female
  Weight: 78 kg

DRUGS (4)
  1. A PILL FOR HER SODIUM [Concomitant]
     Indication: BLOOD SODIUM DECREASED
  2. REBIF [Suspect]
     Route: 058
     Dates: start: 20081201
  3. A LOT OF UNSPECIFIED MEDICATIONS [Concomitant]
  4. REBIF [Suspect]
     Indication: MULTIPLE SCLEROSIS
     Dates: start: 20020101, end: 20060101

REACTIONS (6)
  - INJECTION SITE HAEMATOMA [None]
  - OXYGEN SATURATION DECREASED [None]
  - DEVICE MALFUNCTION [None]
  - PNEUMONIA ASPIRATION [None]
  - BLOOD SODIUM DECREASED [None]
  - MUSCULAR WEAKNESS [None]
